FAERS Safety Report 5081273-1 (Version None)
Quarter: 2006Q3

REPORT INFORMATION
  Report Type: 
  Country: None (occurrence: None)
  Receive Date: 20060816
  Receipt Date: 20060628
  Transmission Date: 20061208
  Serious: Yes (Death, Congenital Anomaly, Other)
  Sender: FDA-Public Use
  Company Number: US-GILEAD-2006-0009809

PATIENT
  Sex: Female
  Weight: 0.985 kg

DRUGS (6)
  1. TRUVADA [Suspect]
     Route: 064
     Dates: start: 20050101
  2. VIRAMUNE [Suspect]
     Route: 064
     Dates: start: 20011107
  3. RETROVIR [Suspect]
     Route: 064
     Dates: start: 20060506, end: 20060506
  4. WELLBUTRIN [Concomitant]
     Route: 064
  5. SEROQUEL [Concomitant]
     Route: 064
  6. AMOXICILLIN [Concomitant]
     Route: 064

REACTIONS (23)
  - BRADYCARDIA NEONATAL [None]
  - BREECH PRESENTATION [None]
  - CAESAREAN SECTION [None]
  - CARDIAC ARREST [None]
  - CONTUSION [None]
  - CYANOSIS [None]
  - DRUG EXPOSURE DURING PREGNANCY [None]
  - EAR MALFORMATION [None]
  - FOETAL GROWTH RETARDATION [None]
  - HYDROPS FOETALIS [None]
  - INFANTILE APNOEIC ATTACK [None]
  - KYPHOSIS [None]
  - METABOLIC ACIDOSIS [None]
  - MICROCEPHALY [None]
  - OLIGOHYDRAMNIOS [None]
  - PERICARDIAL EFFUSION [None]
  - PLEURAL EFFUSION [None]
  - PREMATURE BABY [None]
  - PULMONARY HYPOPLASIA [None]
  - RESPIRATORY FAILURE [None]
  - THROMBOCYTOPENIA [None]
  - ULTRASOUND ABDOMEN ABNORMAL [None]
  - UMBILICAL CORD ABNORMALITY [None]
